FAERS Safety Report 19825532 (Version 1)
Quarter: 2021Q3

REPORT INFORMATION
  Report Type: Other
  Country: GB (occurrence: GB)
  Receive Date: 20210914
  Receipt Date: 20210914
  Transmission Date: 20211014
  Serious: Yes (Other)
  Sender: FDA-Public Use
  Company Number: GB-LUPIN PHARMACEUTICALS INC.-2021-16927

PATIENT
  Age: 23 Year
  Sex: Male
  Weight: 88.9 kg

DRUGS (2)
  1. SERTRALINE [Suspect]
     Active Substance: SERTRALINE HYDROCHLORIDE
     Indication: DEPRESSION SUICIDAL
     Dosage: UNK (75, UNIT NOT SPECIFIED)
     Route: 048
     Dates: start: 20200919
  2. CANNABIS SATIVA [Concomitant]
     Active Substance: CANNABIS SATIVA FLOWERING TOP
     Indication: ILL-DEFINED DISORDER
     Dosage: UNK
     Route: 065

REACTIONS (1)
  - Disorientation [Recovering/Resolving]

NARRATIVE: CASE EVENT DATE: 20210820
